FAERS Safety Report 5102953-5 (Version None)
Quarter: 2006Q3

REPORT INFORMATION
  Report Type: 
  Country: None (occurrence: None)
  Receive Date: 20060907
  Receipt Date: 20060817
  Transmission Date: 20061208
  Serious: Yes (Other)
  Sender: FDA-Public Use
  Company Number: JP200605003739

PATIENT
  Age: 47 Year
  Sex: Female
  Weight: 87.6 kg

DRUGS (10)
  1. OLANZAPINE [Suspect]
     Indication: SCHIZOPHRENIA, DISORGANISED TYPE
     Dosage: 10 MG, DAILY (1/D), ORAL
     Route: 048
     Dates: start: 20060509, end: 20060515
  2. HIBERNA (PROMETHAZINE HYDROCHLORIDE) TABLET [Concomitant]
  3. ARTANE [Concomitant]
  4. AKINETON /AUS/ (BIPERIDEN HYDROCHLORIDE) TABLET [Concomitant]
  5. RIVOTRIL /NOR/ (CLONAZEPAM) TABLET [Concomitant]
  6. ISONIAZID [Concomitant]
  7. RISPERDAL /SWE/ (RISPERIDONE) SOLUTION [Concomitant]
  8. PANTOSIN (PANTETHINE) [Concomitant]
  9. MAGNESIUM OXIDE (MAGNESIUM OXIDE) [Concomitant]
  10. SUCRALFATE [Concomitant]

REACTIONS (3)
  - ASPARTATE AMINOTRANSFERASE INCREASED [None]
  - FEELING ABNORMAL [None]
  - LOSS OF CONSCIOUSNESS [None]
